FAERS Safety Report 7376869-8 (Version None)
Quarter: 2011Q1

REPORT INFORMATION
  Report Type: 
  Country: None (occurrence: None)
  Receive Date: 20110326
  Receipt Date: 20110322
  Transmission Date: 20110831
  Serious: Yes (Other)
  Sender: FDA-Public Use
  Company Number: CH-ABBOTT-11P-151-0713448-00

PATIENT
  Sex: Female

DRUGS (1)
  1. HUMIRA [Suspect]
     Indication: PSORIATIC ARTHROPATHY
     Dosage: 2 INJECTIONS
     Route: 050

REACTIONS (5)
  - TONGUE OEDEMA [None]
  - LUNG DISORDER [None]
  - INFECTION [None]
  - HYPERSENSITIVITY [None]
  - ORAL VIRAL INFECTION [None]
